FAERS Safety Report 9204283 (Version 1)
Quarter: 2013Q2

REPORT INFORMATION
  Report Type: Spontaneous
  Country: US (occurrence: None)
  Receive Date: 20130401
  Receipt Date: 20130401
  Transmission Date: 20140414
  Serious: Yes (Disabling, Other)
  Sender: FDA-Public Use
  Company Number: None

PATIENT
  Age: 61 Year
  Sex: Male
  Weight: 80.74 kg

DRUGS (1)
  1. MORPHINE SULFATE [Suspect]
     Indication: PAIN
     Route: 048
     Dates: start: 20080729, end: 20130331

REACTIONS (22)
  - Fall [None]
  - Post-traumatic neck syndrome [None]
  - Speech disorder [None]
  - Product substitution issue [None]
  - Gait disturbance [None]
  - Walking aid user [None]
  - Cognitive disorder [None]
  - Expressive language disorder [None]
  - Dysgraphia [None]
  - Emotional disorder [None]
  - Insomnia [None]
  - Pain [None]
  - Moaning [None]
  - Hyperhidrosis [None]
  - Memory impairment [None]
  - Headache [None]
  - Epigastric discomfort [None]
  - Anger [None]
  - Personality change [None]
  - Panic attack [None]
  - Depressed mood [None]
  - Inadequate analgesia [None]
